FAERS Safety Report 5578237-8 (Version None)
Quarter: 2007Q4

REPORT INFORMATION
  Report Type: 
  Country: None (occurrence: None)
  Receive Date: 20071231
  Receipt Date: 20071226
  Transmission Date: 20080405
  Serious: Yes (Other)
  Sender: FDA-Public Use
  Company Number: BR-PFIZER INC-2007057637

PATIENT
  Sex: Female

DRUGS (8)
  1. FRONTAL [Suspect]
     Indication: ANXIETY
     Route: 048
  2. FRONTAL [Suspect]
     Indication: PANIC REACTION
  3. SERTRALINE [Concomitant]
     Dosage: DAILY DOSE:50MG
     Route: 048
  4. ALPRAZOLAM [Concomitant]
     Route: 048
  5. LEXOTAN [Concomitant]
     Dosage: DAILY DOSE:3MG
     Route: 048
  6. METFORMIN HCL [Concomitant]
     Route: 048
  7. DIAMICRON MR [Concomitant]
     Route: 048
     Dates: end: 20070101
  8. TRANXILEN [Concomitant]
     Dosage: DAILY DOSE:10MG

REACTIONS (3)
  - ANXIETY [None]
  - DRUG INEFFECTIVE [None]
  - PHOBIA [None]
